FAERS Safety Report 21230180 (Version 3)
Quarter: 2022Q3

REPORT INFORMATION
  Report Type: Spontaneous
  Country: FR (occurrence: FR)
  Receive Date: 20220818
  Receipt Date: 20220920
  Transmission Date: 20221027
  Serious: Yes (Hospitalization)
  Sender: FDA-Public Use
  Company Number: FR-009507513-2208FRA006643

PATIENT
  Sex: Male
  Weight: 46 kg

DRUGS (12)
  1. KEYTRUDA [Suspect]
     Active Substance: PEMBROLIZUMAB
     Indication: Oesophageal squamous cell carcinoma
     Dosage: 200 MILLIGRAM, Q3W
     Dates: start: 20220609, end: 20220609
  2. KEYTRUDA [Suspect]
     Active Substance: PEMBROLIZUMAB
     Dosage: 200 MILLIGRAM, Q3W
     Dates: start: 20220627, end: 20220627
  3. KEYTRUDA [Suspect]
     Active Substance: PEMBROLIZUMAB
     Dosage: 200 MILLIGRAM, Q3W
     Dates: start: 20220728, end: 20220728
  4. FLUOROURACIL\LEUCOVORIN CALCIUM\OXALIPLATIN [Suspect]
     Active Substance: FLUOROURACIL\LEUCOVORIN CALCIUM\OXALIPLATIN
     Indication: Oesophageal squamous cell carcinoma
     Dosage: LEVOFOLINATE 200 MG/M2, OXALIPLATIN 85MG/M2, BOLUS 5FU 400MG/M2 AND 5 FU DIFFUSER 2400MG/M2; EVERY 1
     Dates: start: 20220609, end: 20220609
  5. FLUOROURACIL\LEUCOVORIN CALCIUM\OXALIPLATIN [Suspect]
     Active Substance: FLUOROURACIL\LEUCOVORIN CALCIUM\OXALIPLATIN
     Dosage: LEVOFOLINATE 200 MG/M2, OXALIPLATIN 85MG/M2, BOLUS 5FU 400MG/M2 AND 5 FU DIFFUSER 2400MG/M2; EVERY 1
     Dates: start: 20220627, end: 20220627
  6. FLUOROURACIL\LEUCOVORIN CALCIUM\OXALIPLATIN [Suspect]
     Active Substance: FLUOROURACIL\LEUCOVORIN CALCIUM\OXALIPLATIN
     Dosage: LEVOFOLINATE 200 MG/M2, OXALIPLATIN 85MG/M2, BOLUS 5FU 400MG/M2 AND 5 FU DIFFUSER 2400MG/M2; EVERY 1
     Dates: start: 20220711, end: 20220711
  7. FLUOROURACIL\LEUCOVORIN CALCIUM\OXALIPLATIN [Suspect]
     Active Substance: FLUOROURACIL\LEUCOVORIN CALCIUM\OXALIPLATIN
     Dosage: LEVOFOLINATE 200 MG/M2, OXALIPLATIN 85MG/M2, BOLUS 5FU 400MG/M2 AND 5 FU DIFFUSER 2400MG/M2; EVERY 1
     Dates: start: 20220725, end: 20220725
  8. TRAMADOL HYDROCHLORIDE [Concomitant]
     Active Substance: TRAMADOL HYDROCHLORIDE
     Indication: Pain
     Dosage: 50 MILLIGRAM, QID, DURING THE DAY IF PAIN
  9. DIAZEPAM [Concomitant]
     Active Substance: DIAZEPAM
     Indication: Anxiety
     Dosage: 10 MILLIGRAM, TID, DURING DAY IF ANXIETY
  10. ALBUTEROL SULFATE [Concomitant]
     Active Substance: ALBUTEROL SULFATE
     Indication: Dyspnoea
     Dosage: 1 DOSE 6 TIMES DURING THE DAY IF DYSPNEA
  11. UMECLIDINIUM BROMIDE\VILANTEROL TRIFENATATE [Concomitant]
     Active Substance: UMECLIDINIUM BROMIDE\VILANTEROL TRIFENATATE
     Dosage: STRENGTH: 55 UG/22UG, 1 DOSE IN THE MORNING
  12. LEVOFLOXACIN [Concomitant]
     Active Substance: LEVOFLOXACIN
     Dosage: 1 INJECTION AT 8:00PM

REACTIONS (5)
  - Peripheral venous disease [Recovered/Resolved]
  - Lymphoedema [Recovered/Resolved]
  - Face oedema [Recovering/Resolving]
  - Weight increased [Unknown]
  - Product use issue [Unknown]

NARRATIVE: CASE EVENT DATE: 20220101
